FAERS Safety Report 11475743 (Version 10)
Quarter: 2016Q4

REPORT INFORMATION
  Report Type: Report from Study
  Country: DE (occurrence: DE)
  Receive Date: 20150909
  Receipt Date: 20161120
  Transmission Date: 20170206
  Serious: Yes (Hospitalization)
  Sender: FDA-Public Use
  Company Number: DE-ROCHE-1625197

PATIENT
  Sex: Female

DRUGS (56)
  1. DOXORUBICINE [Suspect]
     Active Substance: DOXORUBICIN
     Dosage: LAST DOSE PRIOR DOSE TO THE SAE ON 03/SEP/2015.
     Route: 042
     Dates: start: 20150903
  2. PEGFILGRASTIM [Suspect]
     Active Substance: PEGFILGRASTIM
     Dosage: ON DAY 4
     Route: 058
     Dates: start: 20150906
  3. PEGFILGRASTIM [Suspect]
     Active Substance: PEGFILGRASTIM
     Route: 058
     Dates: start: 20151109
  4. LERCANIDIPINE HYDROCHLORIDE [Concomitant]
     Active Substance: LERCANIDIPINE HYDROCHLORIDE
     Indication: HYPERTENSION
     Route: 048
     Dates: start: 20150827
  5. AMPHOTERICIN B. [Concomitant]
     Active Substance: AMPHOTERICIN B
     Route: 048
     Dates: start: 20150909
  6. AMLODIPINE [Concomitant]
     Active Substance: AMLODIPINE BESYLATE
     Indication: HYPERTENSION
     Route: 065
     Dates: start: 20160304
  7. TORASEMIDE [Concomitant]
     Active Substance: TORSEMIDE
     Indication: OEDEMA
     Route: 048
     Dates: start: 20160304, end: 20160308
  8. RITUXIMAB [Suspect]
     Active Substance: RITUXIMAB
     Dosage: LAST DOSE PRIOR DOSE TO THE SAE ON 02/SEP/2015,
     Route: 042
     Dates: start: 20150902
  9. DOXORUBICINE [Suspect]
     Active Substance: DOXORUBICIN
     Dosage: LAST DOSE PRIOR DOSE TO THE SAE ON 05/NOV/2015
     Route: 042
     Dates: start: 20151105
  10. VINCRISTINE [Suspect]
     Active Substance: VINCRISTINE
     Dosage: LAST DOSE PRIOR DOSE TO THE SAE ON 03/SEP/2015.
     Route: 042
     Dates: start: 20150903
  11. VINCRISTINE [Suspect]
     Active Substance: VINCRISTINE
     Dosage: LAST DOSE PRIOR DOSE TO THE SAE ON 05/NOV/2015
     Route: 042
     Dates: start: 20151105, end: 20151105
  12. PEGFILGRASTIM [Suspect]
     Active Substance: PEGFILGRASTIM
     Indication: B-CELL LYMPHOMA
     Dosage: ON DAY 5
     Route: 058
     Dates: start: 20150823
  13. ALLOPURINOL. [Concomitant]
     Active Substance: ALLOPURINOL
     Route: 048
     Dates: end: 20150915
  14. AMPHOTERICIN B. [Concomitant]
     Active Substance: AMPHOTERICIN B
     Indication: PROPHYLAXIS
     Route: 048
     Dates: start: 20150805
  15. FLUCONAZOLE. [Concomitant]
     Active Substance: FLUCONAZOLE
     Route: 065
     Dates: start: 20160303
  16. ONDANSETRON [Concomitant]
     Active Substance: ONDANSETRON
     Indication: NAUSEA
     Route: 042
     Dates: start: 20160304, end: 20160308
  17. PREDNISOLONE. [Suspect]
     Active Substance: PREDNISOLONE
     Dosage: DATE OF LAST DOSE PRIOR TO SAE: 20/AUG/2015
     Route: 048
     Dates: start: 20150819
  18. CYCLOPHOSPHAMIDE. [Suspect]
     Active Substance: CYCLOPHOSPHAMIDE
     Indication: B-CELL LYMPHOMA
     Dosage: ON DAY 1?DATE OF LAST DOSE PRIOR TO SAE: 20/AUG/2015
     Route: 042
     Dates: start: 20150819
  19. CYCLOPHOSPHAMIDE. [Suspect]
     Active Substance: CYCLOPHOSPHAMIDE
     Dosage: LAST DOSE PRIOR DOSE TO THE SAE ON 03/SEP/2015.
     Route: 042
     Dates: start: 20150903
  20. CYCLOPHOSPHAMIDE. [Suspect]
     Active Substance: CYCLOPHOSPHAMIDE
     Dosage: LAST DOSE PRIOR DOSE TO THE SAE ON 05/NOV/2015.
     Route: 042
     Dates: start: 20151105
  21. PANTOPRAZOL NATRIUM [Concomitant]
     Indication: PROPHYLAXIS AGAINST GASTROINTESTINAL ULCER
     Route: 048
     Dates: start: 20160420
  22. ACICLOVIR [Concomitant]
     Active Substance: ACYCLOVIR
     Route: 048
     Dates: start: 20150805
  23. SULFAMETHOXAZOLE/TRIMETHOPRIM [Concomitant]
     Active Substance: SULFAMETHOXAZOLE\TRIMETHOPRIM
     Route: 048
     Dates: start: 20150805
  24. ALLOPURINOL. [Concomitant]
     Active Substance: ALLOPURINOL
     Indication: PROPHYLAXIS
     Route: 048
     Dates: start: 20150805
  25. CIPROFLOXACIN. [Concomitant]
     Active Substance: CIPROFLOXACIN
     Indication: PROPHYLAXIS
     Route: 048
     Dates: start: 20150824
  26. RITUXIMAB [Suspect]
     Active Substance: RITUXIMAB
     Dosage: FOR 1 DAY, LAST DOSE PRIOR DOSE TO THE SAE ON 30/DEC/2015?MOST RECENT DOSE PRIOR TO SAE GASTRIC ULCE
     Route: 042
     Dates: start: 20151230
  27. ACICLOVIR [Concomitant]
     Active Substance: ACYCLOVIR
     Route: 048
     Dates: start: 20160301, end: 20160312
  28. COLECALCIFEROL [Concomitant]
     Active Substance: CHOLECALCIFEROL
     Indication: OSTEOPOROSIS
     Route: 048
     Dates: start: 20150807
  29. VALSARTAN. [Concomitant]
     Active Substance: VALSARTAN
     Indication: HYPERTONIA
     Route: 048
     Dates: start: 20160301, end: 20160312
  30. VALSARTAN. [Concomitant]
     Active Substance: VALSARTAN
     Route: 048
     Dates: start: 20160301
  31. PANTOPRAZOL [Concomitant]
     Active Substance: PANTOPRAZOLE SODIUM
     Indication: PROPHYLAXIS AGAINST GASTROINTESTINAL ULCER
     Dosage: FOR ONE DAY
     Route: 042
     Dates: start: 20160304
  32. CODEINE [Concomitant]
     Active Substance: CODEINE
     Indication: COUGH
     Route: 048
     Dates: start: 20160304, end: 20160312
  33. TAMIFLU [Concomitant]
     Active Substance: OSELTAMIVIR PHOSPHATE
     Route: 048
     Dates: start: 20160306, end: 20160308
  34. LEVOFLOXACIN. [Concomitant]
     Active Substance: LEVOFLOXACIN
     Route: 048
     Dates: start: 20160311, end: 20160314
  35. BISOPROLOL [Concomitant]
     Active Substance: BISOPROLOL
     Indication: HYPERTENSION
     Route: 048
     Dates: end: 20150827
  36. FLUCONAZOLE. [Concomitant]
     Active Substance: FLUCONAZOLE
     Route: 048
     Dates: start: 20150908, end: 20150912
  37. PANTOPRAZOL [Concomitant]
     Active Substance: PANTOPRAZOLE SODIUM
     Route: 042
     Dates: start: 20160304
  38. RITUXIMAB [Suspect]
     Active Substance: RITUXIMAB
     Indication: B-CELL LYMPHOMA
     Dosage: DATE OF LAST DOSE PRIOR TO SAE: 21/AUG/2015
     Route: 042
     Dates: start: 20150814
  39. PREDNISOLONE. [Suspect]
     Active Substance: PREDNISOLONE
     Indication: B-CELL LYMPHOMA
     Route: 048
     Dates: start: 20150803
  40. PREDNISOLONE. [Suspect]
     Active Substance: PREDNISOLONE
     Dosage: LAST DOSE PRIOR DOSE TO THE SAE ON 05/NOV/2015.
     Route: 048
     Dates: start: 20151105, end: 20151109
  41. SODIUM PICOSULFATE [Concomitant]
     Active Substance: SODIUM PICOSULFATE
     Indication: CONSTIPATION
     Dosage: DROPS
     Route: 048
  42. CIPROFLOXACIN. [Concomitant]
     Active Substance: CIPROFLOXACIN
     Route: 048
     Dates: start: 20150908, end: 20150910
  43. DALTEPARINNATRIUM [Concomitant]
     Route: 058
     Dates: start: 20160304, end: 20160311
  44. DOXORUBICINE [Suspect]
     Active Substance: DOXORUBICIN
     Indication: B-CELL LYMPHOMA
     Dosage: ON DAY 1?DATE OF LAST DOSE PRIOR TO SAE: 20/AUG/2015
     Route: 042
     Dates: start: 20150819
  45. VINCRISTINE [Suspect]
     Active Substance: VINCRISTINE
     Indication: B-CELL LYMPHOMA
     Dosage: ON DAY 1?DATE OF LAST DOSE PRIOR TO SAE: 20/AUG/2015
     Route: 042
     Dates: start: 20150819
  46. TORASEMIDE [Concomitant]
     Active Substance: TORSEMIDE
     Indication: HYPERTONIA
     Route: 048
     Dates: start: 20160304
  47. TORASEMIDE [Concomitant]
     Active Substance: TORSEMIDE
     Route: 048
     Dates: start: 20160421
  48. PREDNISOLONE. [Suspect]
     Active Substance: PREDNISOLONE
     Dosage: LAST DOSE PRIOR DOSE TO THE SAE ON 03/SEP/2015.
     Route: 048
     Dates: start: 20150903
  49. PANTOPRAZOL NATRIUM [Concomitant]
     Indication: PROPHYLAXIS
     Route: 048
     Dates: start: 20150730
  50. ACICLOVIR [Concomitant]
     Active Substance: ACYCLOVIR
     Indication: PROPHYLAXIS
     Route: 048
     Dates: start: 20150805
  51. SULFAMETHOXAZOLE/TRIMETHOPRIM [Concomitant]
     Active Substance: SULFAMETHOXAZOLE\TRIMETHOPRIM
     Indication: PROPHYLAXIS
     Route: 048
     Dates: start: 20150803
  52. VALSARTAN. [Concomitant]
     Active Substance: VALSARTAN
     Indication: HYPERTENSION
     Route: 048
     Dates: end: 20150827
  53. CODEINE [Concomitant]
     Active Substance: CODEINE
     Route: 048
     Dates: start: 20160304
  54. TRIMETHOPRIM. [Concomitant]
     Active Substance: TRIMETHOPRIM
     Route: 048
     Dates: start: 20160302, end: 20160312
  55. HYDROCHLOROTHIAZIDE. [Concomitant]
     Active Substance: HYDROCHLOROTHIAZIDE
     Route: 048
     Dates: start: 20150827
  56. NATRIUMPICOSULFAT [Concomitant]
     Indication: CONSTIPATION
     Dosage: DROPS
     Route: 065
     Dates: start: 20160606

REACTIONS (6)
  - Pyrexia [Recovered/Resolved]
  - Gastric ulcer [Recovered/Resolved]
  - Febrile neutropenia [Recovered/Resolved]
  - Pyrexia [Recovered/Resolved]
  - Hypotension [Recovered/Resolved]
  - Syncope [Recovered/Resolved]

NARRATIVE: CASE EVENT DATE: 20150810
